FAERS Safety Report 25212660 (Version 2)
Quarter: 2025Q2

REPORT INFORMATION
  Report Type: Report from Study
  Country: US (occurrence: US)
  Receive Date: 20250418
  Receipt Date: 20250513
  Transmission Date: 20250716
  Serious: Yes (Death, Hospitalization)
  Sender: MERCK SHARP & DOHME LLC
  Company Number: US-009507513-2310USA000526

PATIENT
  Age: 78 Year
  Sex: Female

DRUGS (1)
  1. KEYTRUDA [Suspect]
     Active Substance: PEMBROLIZUMAB
     Dosage: STRENGTH: 100 MG
     Route: 042
     Dates: start: 20230908, end: 20230908

REACTIONS (3)
  - Death [Fatal]
  - Fall [Unknown]
  - Movement disorder [Unknown]

NARRATIVE: CASE EVENT DATE: 20230929
